FAERS Safety Report 5499023-3 (Version None)
Quarter: 2007Q4

REPORT INFORMATION
  Report Type: 
  Country: None (occurrence: None)
  Receive Date: 20071026
  Receipt Date: 20070703
  Transmission Date: 20080405
  Serious: No
  Sender: FDA-Public Use
  Company Number: A0651948A

PATIENT
  Age: 76 Year
  Sex: Female

DRUGS (5)
  1. ADVAIR DISKUS 100/50 [Suspect]
     Indication: ASTHMA
     Dosage: 1PUFF PER DAY
     Route: 055
  2. ALLEGRA [Concomitant]
  3. SYNTHROID [Concomitant]
  4. MICARDIS [Concomitant]
  5. PRILOSEC [Concomitant]

REACTIONS (3)
  - CHEST DISCOMFORT [None]
  - ILL-DEFINED DISORDER [None]
  - PHARMACEUTICAL PRODUCT COMPLAINT [None]
